FAERS Safety Report 7966575-0 (Version None)
Quarter: 2011Q4

REPORT INFORMATION
  Report Type: 
  Country: None (occurrence: None)
  Receive Date: 20111209
  Receipt Date: 20111130
  Transmission Date: 20120403
  Serious: Yes (Hospitalization, Other)
  Sender: FDA-Public Use
  Company Number: FI-AMGEN-FINSP2011054354

PATIENT
  Age: 47 Year
  Sex: Male

DRUGS (11)
  1. PREDNISOLONE [Suspect]
     Dosage: 30 MG, 1X/DAY
     Dates: start: 20111001, end: 20110101
  2. PREDNISOLONE [Suspect]
     Dosage: 40 MG, QD
     Dates: start: 20110101, end: 20111108
  3. NEORAL [Concomitant]
     Dosage: 125 MG, QD
     Dates: start: 20080601, end: 20111001
  4. PREDNISOLONE [Suspect]
     Dosage: 35 MG, QWK, DOSE REDUCTION 5 MG WEEKLY
     Dates: start: 20111109
  5. NEORAL [Concomitant]
     Dosage: 50 MG, 2X/DAY
     Dates: start: 20111001, end: 20110101
  6. ASACOL [Suspect]
     Dosage: 1600+800 MG DAILY
     Dates: start: 20111024, end: 20111102
  7. ASACOL [Suspect]
     Dosage: 800 MG, BID
     Dates: start: 20111001, end: 20111023
  8. OXIKLORIN [Concomitant]
     Dosage: 300 MG, FIVE DAYS A WEEK
     Dates: start: 20080601, end: 20111001
  9. OXIKLORIN [Concomitant]
     Dosage: 300 MG, QD
     Dates: start: 20111001, end: 20110101
  10. ENBREL [Suspect]
     Indication: JUVENILE ARTHRITIS
     Dosage: 50 MG, WEEKLY
     Route: 058
     Dates: start: 20110718, end: 20110101
  11. ENBREL [Suspect]
     Dosage: 50 MG, WEEKLY
     Route: 058
     Dates: start: 20110901

REACTIONS (4)
  - PYREXIA [None]
  - DIARRHOEA [None]
  - LEUKOCYTOSIS [None]
  - COLITIS ULCERATIVE [None]
